FAERS Safety Report 6595029-1 (Version None)
Quarter: 2010Q1

REPORT INFORMATION
  Report Type: 
  Country: None (occurrence: None)
  Receive Date: 20100218
  Receipt Date: 20100218
  Transmission Date: 20100710
  Serious: No
  Sender: FDA-Public Use
  Company Number: None

PATIENT
  Sex: Female
  Weight: 70 kg

DRUGS (1)
  1. CISPLATIN [Suspect]
     Dosage: 70 MG
     Dates: end: 20070305

REACTIONS (1)
  - LEUKOPENIA [None]
